FAERS Safety Report 25273396 (Version 3)
Quarter: 2025Q2

REPORT INFORMATION
  Report Type: Spontaneous
  Country: AR (occurrence: AR)
  Receive Date: 20250506
  Receipt Date: 20250611
  Transmission Date: 20250717
  Serious: No
  Sender: PFIZER
  Company Number: AR-PFIZER INC-202500091995

PATIENT
  Age: 12 Year
  Sex: Female

DRUGS (1)
  1. GENOTROPIN [Suspect]
     Active Substance: SOMATROPIN
     Indication: Foetal growth restriction
     Dates: start: 20190116, end: 20250422

REACTIONS (2)
  - Device information output issue [Unknown]
  - Drug dose omission by device [Unknown]
